FAERS Safety Report 21073017 (Version 2)
Quarter: 2024Q1

REPORT INFORMATION
  Report Type: Spontaneous
  Country: US (occurrence: US)
  Receive Date: 20220712
  Receipt Date: 20240130
  Transmission Date: 20240410
  Serious: No
  Sender: FDA-Public Use
  Company Number: US-SA-SAC20220707000303

PATIENT
  Age: 64 Year
  Sex: Female

DRUGS (9)
  1. DUPIXENT [Suspect]
     Active Substance: DUPILUMAB
     Indication: Dermatitis atopic
     Dosage: 600 MG, 1X
     Route: 058
     Dates: start: 202206, end: 20220615
  2. DUPIXENT [Suspect]
     Active Substance: DUPILUMAB
     Dosage: 300 MG, QOW
     Route: 058
     Dates: start: 2022
  3. LISINOPRIL [Concomitant]
     Active Substance: LISINOPRIL
  4. FUROSEMIDE [Concomitant]
     Active Substance: FUROSEMIDE
  5. GABAPENTIN [Concomitant]
     Active Substance: GABAPENTIN
  6. METOPROLOL [Concomitant]
     Active Substance: METOPROLOL
  7. OMEPRAZOLE [Concomitant]
     Active Substance: OMEPRAZOLE
  8. RECLAST [Concomitant]
     Active Substance: ZOLEDRONIC ACID
  9. VITAMIN D NOS [Concomitant]
     Active Substance: VITAMIN D NOS
     Dosage: STRENGTH: 25 UG (1000)

REACTIONS (3)
  - Gait disturbance [Recovered/Resolved]
  - Pain in extremity [Recovered/Resolved]
  - Pruritus [Recovered/Resolved]
